FAERS Safety Report 6266628-1 (Version None)
Quarter: 2009Q3

REPORT INFORMATION
  Report Type: 
  Country: None (occurrence: None)
  Receive Date: 20090710
  Receipt Date: 20090624
  Transmission Date: 20100115
  Serious: Yes (Hospitalization, Other)
  Sender: FDA-Public Use
  Company Number: ADE2009-0692

PATIENT
  Age: 64 Year
  Sex: Male

DRUGS (7)
  1. METFORMIN HCL [Suspect]
     Indication: TYPE 2 DIABETES MELLITUS
     Dosage: 500MG - BID - ORAL
     Route: 048
  2. GLYBURIDE [Suspect]
     Indication: TYPE 2 DIABETES MELLITUS
     Dosage: 10MG - BID - ORAL
     Route: 048
  3. LITHIUM CARBONATE [Concomitant]
  4. TRAZODONE [Concomitant]
  5. DILTIAZEM [Concomitant]
  6. LOVASTATIN [Concomitant]
  7. SUBLINGUAL NITROGLYCERINE [Concomitant]

REACTIONS (5)
  - DECREASED APPETITE [None]
  - FATIGUE [None]
  - HEPATITIS CHOLESTATIC [None]
  - SPLENOMEGALY [None]
  - WEIGHT DECREASED [None]
